FAERS Safety Report 15779323 (Version 3)
Quarter: 2019Q1

REPORT INFORMATION
  Report Type: Spontaneous
  Country: IQ (occurrence: IQ)
  Receive Date: 20190101
  Receipt Date: 20190206
  Transmission Date: 20190417
  Serious: Yes (Other)
  Sender: FDA-Public Use
  Company Number: IQ-GLAXOSMITHKLINE-IQ2018231927

PATIENT
  Age: 30 Year
  Sex: Female

DRUGS (1)
  1. VOLTFAST [Suspect]
     Active Substance: DICLOFENAC
     Indication: MIGRAINE
     Dosage: 75 MG (ON), UNK
     Route: 048
     Dates: start: 20181201, end: 20181215

REACTIONS (3)
  - Product taste abnormal [Not Recovered/Not Resolved]
  - Drug ineffective [Not Recovered/Not Resolved]
  - Product counterfeit [Not Recovered/Not Resolved]

NARRATIVE: CASE EVENT DATE: 20181201
